FAERS Safety Report 10967028 (Version 2)
Quarter: 2015Q2

REPORT INFORMATION
  Report Type: Report from Study
  Country: PL (occurrence: PL)
  Receive Date: 20150330
  Receipt Date: 20150409
  Transmission Date: 20150821
  Serious: Yes (Hospitalization)
  Sender: FDA-Public Use
  Company Number: PL-PFIZER INC-2015099870

PATIENT
  Age: 67 Year
  Sex: Female
  Weight: 65 kg

DRUGS (10)
  1. METHOTREXATE SODIUM. [Concomitant]
     Active Substance: METHOTREXATE SODIUM
     Indication: PSORIATIC ARTHROPATHY
     Dosage: 15 MG, WEEKLY (ONCE PER WEEK)
     Route: 058
     Dates: start: 20140425
  2. ZOMIREN SR [Concomitant]
     Indication: DEPRESSION
     Dosage: 500 ?G, 1X/DAY
     Route: 048
     Dates: start: 2002
  3. TOFACITINIB CITRATE [Suspect]
     Active Substance: TOFACITINIB CITRATE
     Indication: PSORIATIC ARTHROPATHY
     Dosage: 2X/DAY
     Route: 048
     Dates: start: 201501
  4. ACIDUM FOLICUM [Concomitant]
     Active Substance: FOLIC ACID
     Indication: ANAEMIA PROPHYLAXIS
     Dosage: 5 MG, WEEKLY (ONCE PER WEEK)
     Route: 048
     Dates: start: 20140427
  5. PLACEBO [Suspect]
     Active Substance: UNSPECIFIED INGREDIENT
     Indication: PSORIATIC ARTHROPATHY
     Dosage: CYCLIC, EVERY 2 WEEKS
     Route: 058
     Dates: start: 201501
  6. ZOLPIC [Concomitant]
     Indication: DEPRESSION
     Dosage: 10 MG, 1X/DAY
     Route: 048
     Dates: start: 20131001
  7. BIOFENAC [Concomitant]
     Active Substance: ACECLOFENAC
     Indication: PSORIATIC ARTHROPATHY
     Dosage: 100 MG, 2X/DAY
     Route: 048
     Dates: start: 20140126
  8. ROSWERA [Concomitant]
     Indication: HYPERCHOLESTEROLAEMIA
     Dosage: 10 MG, 1X/DAY
     Route: 048
     Dates: start: 20131123
  9. PLACEBO [Suspect]
     Active Substance: UNSPECIFIED INGREDIENT
     Indication: PSORIATIC ARTHROPATHY
     Dosage: 2X/DAY
     Route: 048
     Dates: start: 20141001
  10. CONTROLOC [Concomitant]
     Active Substance: PANTOPRAZOLE SODIUM
     Indication: PROPHYLAXIS
     Dosage: 20 MG, 1X/DAY
     Route: 048
     Dates: start: 20140126

REACTIONS (2)
  - Disease progression [Recovered/Resolved]
  - Uterine polyp [Recovered/Resolved]

NARRATIVE: CASE EVENT DATE: 20150211
